FAERS Safety Report 16581507 (Version 1)
Quarter: 2019Q3

REPORT INFORMATION
  Report Type: Spontaneous
  Country: US (occurrence: US)
  Receive Date: 20190603
  Receipt Date: 20190603
  Transmission Date: 20191004
  Serious: No
  Sender: FDA-Public Use
  Company Number: None

PATIENT

DRUGS (3)
  1. FEIBA [Suspect]
     Active Substance: ANTI-INHIBITOR COAGULANT COMPLEX
     Dosage: ?          OTHER FREQUENCY:SINGLE-DOSE VIAL;?
  2. KCENTRA [Suspect]
     Active Substance: COAGULATION FACTOR IX HUMAN\COAGULATION FACTOR VII HUMAN\COAGULATION FACTOR X HUMAN\PROTEIN C\PROTEIN S HUMAN\PROTHROMBIN
     Dosage: ?          OTHER DOSE:500 U  RANGE;OTHER FREQUENCY:SINGLE-USE VIA;?
     Route: 042
  3. FEIBA [Suspect]
     Active Substance: ANTI-INHIBITOR COAGULANT COMPLEX
     Route: 042

REACTIONS (2)
  - Product packaging confusion [None]
  - Product use complaint [None]

NARRATIVE: CASE EVENT DATE: 2019
